FAERS Safety Report 7073260-9 (Version None)
Quarter: 2010Q4

REPORT INFORMATION
  Report Type: 
  Country: None (occurrence: None)
  Receive Date: 20101029
  Receipt Date: 20100518
  Transmission Date: 20110411
  Serious: No
  Sender: FDA-Public Use
  Company Number: A0860221A

PATIENT
  Age: 72 Year
  Sex: Female

DRUGS (4)
  1. ADVAIR DISKUS 100/50 [Suspect]
     Indication: CHRONIC OBSTRUCTIVE PULMONARY DISEASE
     Dosage: 1PUFF TWICE PER DAY
     Route: 055
     Dates: start: 20100406, end: 20100504
  2. COUMADIN [Concomitant]
  3. HYZAAR [Concomitant]
  4. TOPROL-XL [Concomitant]

REACTIONS (2)
  - DYSPNOEA [None]
  - MUSCLE SPASMS [None]
